FAERS Safety Report 5113850-3 (Version None)
Quarter: 2006Q3

REPORT INFORMATION
  Report Type: 
  Country: None (occurrence: None)
  Receive Date: 20060921
  Receipt Date: 20060912
  Transmission Date: 20061208
  Serious: Yes (Other)
  Sender: FDA-Public Use
  Company Number: 008607

PATIENT
  Age: 28 Year
  Sex: Female

DRUGS (3)
  1. CLARAVIS [Suspect]
     Indication: ACNE
     Dosage: SEE IMAGE
     Route: 048
     Dates: start: 20060601, end: 20060810
  2. CLARAVIS [Suspect]
     Indication: ACNE
     Dosage: SEE IMAGE
     Route: 048
     Dates: start: 20060601, end: 20060810
  3. YASMIN [Suspect]
     Indication: ORAL CONTRACEPTION

REACTIONS (4)
  - BACK PAIN [None]
  - EPISTAXIS [None]
  - MUSCLE SPASMS [None]
  - PULMONARY EMBOLISM [None]
